FAERS Safety Report 7119572-1 (Version None)
Quarter: 2010Q4

REPORT INFORMATION
  Report Type: 
  Country: None (occurrence: None)
  Receive Date: 20101112
  Receipt Date: 20101104
  Transmission Date: 20110411
  Serious: Yes (Hospitalization)
  Sender: FDA-Public Use
  Company Number: CTI_01261_2010

PATIENT
  Age: 76 Year
  Sex: Male

DRUGS (1)
  1. GIASION (CEFDITOREN) [Suspect]
     Indication: PRODUCT USED FOR UNKNOWN INDICATION
     Dosage: DF

REACTIONS (1)
  - LARYNGEAL OEDEMA [None]
